FAERS Safety Report 6667093-2 (Version None)
Quarter: 2010Q2

REPORT INFORMATION
  Report Type: 
  Country: None (occurrence: None)
  Receive Date: 20100402
  Receipt Date: 20100402
  Transmission Date: 20101027
  Serious: No
  Sender: FDA-Public Use
  Company Number: None

PATIENT
  Sex: Male
  Weight: 83.9154 kg

DRUGS (1)
  1. PROPECIA [Suspect]
     Indication: ALOPECIA
     Dosage: 1 PILL DAILY PO
     Route: 048
     Dates: start: 19970101, end: 20090501

REACTIONS (4)
  - DRUG EFFECT DECREASED [None]
  - ERECTILE DYSFUNCTION [None]
  - PENIS DISORDER [None]
  - TESTICULAR ATROPHY [None]
